FAERS Safety Report 12357909 (Version 2)
Quarter: 2016Q3

REPORT INFORMATION
  Report Type: Spontaneous
  Country: US (occurrence: US)
  Receive Date: 20160512
  Receipt Date: 20160703
  Transmission Date: 20161109
  Serious: No
  Sender: FDA-Public Use
  Company Number: US-009507513-1604USA018458

PATIENT
  Sex: Female

DRUGS (1)
  1. CUBICIN [Suspect]
     Active Substance: DAPTOMYCIN
     Indication: ANTI-INFECTIVE THERAPY
     Dosage: 500 MG INJECTION/ ONCE PER DAY
     Route: 042
     Dates: start: 20160331, end: 20160408

REACTIONS (2)
  - Blood creatine phosphokinase increased [Recovering/Resolving]
  - Infection [Recovering/Resolving]

NARRATIVE: CASE EVENT DATE: 2016
